FAERS Safety Report 9875215 (Version 1)
Quarter: 2014Q1

REPORT INFORMATION
  Report Type: Spontaneous
  Country: US (occurrence: None)
  Receive Date: 20140205
  Receipt Date: 20140205
  Transmission Date: 20141002
  Serious: No
  Sender: FDA-Public Use
  Company Number: None

PATIENT
  Age: 40 Year
  Sex: Male
  Weight: 67.13 kg

DRUGS (1)
  1. CIPROFLOXACIN HCL [Suspect]
     Indication: PROSTATITIS
     Route: 048
     Dates: start: 20140131, end: 20140202

REACTIONS (6)
  - Paraesthesia [None]
  - Pain in extremity [None]
  - Tendonitis [None]
  - Burning sensation [None]
  - Muscular weakness [None]
  - Activities of daily living impaired [None]
